FAERS Safety Report 21246732 (Version 2)
Quarter: 2022Q3

REPORT INFORMATION
  Report Type: Spontaneous
  Country: US (occurrence: US)
  Receive Date: 20220824
  Receipt Date: 20220901
  Transmission Date: 20221026
  Serious: Yes (Other)
  Sender: FDA-Public Use
  Company Number: US-009507513-2208USA006067

PATIENT
  Age: 23 Year
  Sex: Female

DRUGS (1)
  1. BRIDION [Suspect]
     Active Substance: SUGAMMADEX
     Indication: Neuromuscular blockade reversal
     Dosage: UNK
     Route: 042

REACTIONS (6)
  - Abortion spontaneous [Unknown]
  - Pregnancy on contraceptive [Unknown]
  - Unintended pregnancy [Unknown]
  - Maternal exposure before pregnancy [Unknown]
  - Product communication issue [Unknown]
  - Labelled drug-drug interaction medication error [Unknown]
